FAERS Safety Report 7824939-X (Version None)
Quarter: 2011Q4

REPORT INFORMATION
  Report Type: 
  Country: None (occurrence: None)
  Receive Date: 20111019
  Receipt Date: 20110303
  Transmission Date: 20120403
  Serious: No
  Sender: FDA-Public Use
  Company Number: US-BRISTOL-MYERS SQUIBB COMPANY-15586571

PATIENT
  Age: 68 Year
  Sex: Male
  Weight: 91 kg

DRUGS (6)
  1. CRESTOR [Concomitant]
     Indication: BLOOD CHOLESTEROL ABNORMAL
  2. METOPROLOL TARTRATE [Concomitant]
  3. METFORMIN HCL [Concomitant]
  4. JANUVIA [Concomitant]
  5. GLYBURIDE [Concomitant]
  6. AVALIDE [Suspect]
     Indication: HYPERTENSION
     Dosage: 1 DF: AVALIDE 300/25

REACTIONS (1)
  - BLOOD PRESSURE INCREASED [None]
